FAERS Safety Report 5733059-X (Version None)
Quarter: 2008Q2

REPORT INFORMATION
  Report Type: 
  Country: None (occurrence: None)
  Receive Date: 20080509
  Receipt Date: 20080501
  Transmission Date: 20081010
  Serious: Yes (Death)
  Sender: FDA-Public Use
  Company Number: US-TYCO HEALTHCARE/MALLINCKRODT-T200800758

PATIENT

DRUGS (1)
  1. METHADONE HCL [Suspect]
     Dosage: 4 PILLS

REACTIONS (2)
  - ACCIDENTAL OVERDOSE [None]
  - DRUG DIVERSION [None]
